FAERS Safety Report 7840731 (Version 7)
Quarter: 2014Q1

REPORT INFORMATION
  Report Type: Spontaneous
  Country: US (occurrence: None)
  Receive Date: 20100218
  Receipt Date: 20130418
  Transmission Date: 20141002
  Serious: Yes (Hospitalization, Other)
  Sender: FDA-Public Use
  Company Number: AUR-APL-2010-00452

PATIENT
  Age: 63 Year
  Sex: Female

DRUGS (8)
  1. HYDROCHLOROTHIAZIDE (HYDROCHLOROTHIAZIDE) [Suspect]
     Indication: HYPERTENSION
     Dosage: 12.5 MG (12.5 MG, 1 IN 1 D), ORAL
     Route: 048
     Dates: start: 2005, end: 200801
  2. AMLODIPINE (AMLODIPINE) [Suspect]
     Indication: HYPERTENSION
     Dosage: 5 MG, 1 D, ORAL
     Route: 048
     Dates: start: 201302, end: 20130326
  3. BENICAR HCT [Suspect]
     Indication: HYPERTENSION
     Dosage: 40/12.5 MG, 1X/DAY, ORAL
     Route: 048
     Dates: start: 2002, end: 2005
  4. BENICAR [Suspect]
     Indication: PRODUCT USED FOR UNKNOWN INDICATION
     Dosage: 40 MG, 1 IN 1 D, ORAL
     Route: 048
     Dates: start: 200209, end: 200801
  5. CIPRO [Suspect]
     Indication: PRODUCT USED FOR UNKNOWN INDICATION
  6. INSULIN (INSULIN) [Concomitant]
  7. ECOTRIN (ACETYLSALICYLIC ACID) [Concomitant]
  8. HUMULIN 70/30 (HUMAN MIXTARD) [Concomitant]

REACTIONS (20)
  - Cerebrovascular accident [None]
  - Hypotension [None]
  - Incorrect dose administered [None]
  - Hypertension [None]
  - Heart rate decreased [None]
  - Dyspnoea [None]
  - Abdominal pain upper [None]
  - Diarrhoea [None]
  - Carotid artery occlusion [None]
  - Transient ischaemic attack [None]
  - Staphylococcal infection [None]
  - Hypertension [None]
  - Skin ulcer [None]
  - Hypersensitivity [None]
  - Blood pressure fluctuation [None]
  - Localised infection [None]
  - Heart rate increased [None]
  - Eye haemorrhage [None]
  - Palpitations [None]
  - Tremor [None]
